FAERS Safety Report 17258078 (Version 4)
Quarter: 2020Q1

REPORT INFORMATION
  Report Type: Spontaneous
  Country: US (occurrence: US)
  Receive Date: 20200110
  Receipt Date: 20200323
  Transmission Date: 20200409
  Serious: Yes (Disabling, Other)
  Sender: FDA-Public Use
  Company Number: US-GUERBET-US-20190297

PATIENT
  Age: 53 Year
  Sex: Male
  Weight: 95 kg

DRUGS (1)
  1. DOTAREM [Suspect]
     Active Substance: GADOTERATE MEGLUMINE
     Indication: MAGNETIC RESONANCE IMAGING BRAIN
     Route: 042
     Dates: start: 20190306, end: 20190306

REACTIONS (8)
  - Muscle contracture [Unknown]
  - Impaired quality of life [Not Recovered/Not Resolved]
  - Peripheral coldness [Unknown]
  - Muscular weakness [Not Recovered/Not Resolved]
  - Product residue present [Not Recovered/Not Resolved]
  - Fibrosis [Unknown]
  - Back pain [Unknown]
  - Myalgia [Not Recovered/Not Resolved]

NARRATIVE: CASE EVENT DATE: 201903
